FAERS Safety Report 7593036-3 (Version None)
Quarter: 2011Q3

REPORT INFORMATION
  Report Type: 
  Country: None (occurrence: None)
  Receive Date: 20110706
  Receipt Date: 20110520
  Transmission Date: 20111222
  Serious: No
  Sender: FDA-Public Use
  Company Number: JP-ROCHE-782322

PATIENT
  Sex: Male
  Weight: 54 kg

DRUGS (42)
  1. CAPECITABINE [Suspect]
     Route: 048
     Dates: start: 20101202, end: 20101216
  2. CAPECITABINE [Suspect]
     Route: 048
     Dates: start: 20110421, end: 20110505
  3. BEVACIZUMAB [Suspect]
     Route: 041
     Dates: start: 20100729, end: 20100729
  4. CAPECITABINE [Suspect]
     Route: 048
     Dates: start: 20100506, end: 20100520
  5. CAPECITABINE [Suspect]
     Route: 048
     Dates: start: 20100819, end: 20100902
  6. CAPECITABINE [Suspect]
     Route: 048
     Dates: start: 20110331, end: 20110414
  7. BEVACIZUMAB [Suspect]
     Route: 041
     Dates: start: 20100506, end: 20100506
  8. BEVACIZUMAB [Suspect]
     Route: 041
     Dates: start: 20100909, end: 20100909
  9. CAPECITABINE [Suspect]
     Route: 048
     Dates: start: 20100527, end: 20100610
  10. CAPECITABINE [Suspect]
     Route: 048
     Dates: start: 20100708, end: 20100722
  11. CAPECITABINE [Suspect]
     Route: 048
     Dates: start: 20100729, end: 20100812
  12. CAPECITABINE [Suspect]
     Route: 048
     Dates: start: 20100909, end: 20100923
  13. BEVACIZUMAB [Suspect]
     Route: 041
     Dates: start: 20100819, end: 20100819
  14. BEVACIZUMAB [Suspect]
     Route: 041
     Dates: start: 20110203, end: 20110203
  15. OXALIPLATIN [Suspect]
     Route: 041
     Dates: start: 20100506, end: 20100506
  16. CAPECITABINE [Suspect]
     Route: 048
     Dates: start: 20101021, end: 20101104
  17. CAPECITABINE [Suspect]
     Route: 048
     Dates: start: 20110203, end: 20110217
  18. CAPECITABINE [Suspect]
     Route: 048
     Dates: start: 20110310, end: 20110324
  19. BEVACIZUMAB [Suspect]
     Route: 041
     Dates: start: 20100708, end: 20100708
  20. CAPECITABINE [Suspect]
     Route: 048
     Dates: start: 20100930, end: 20101014
  21. CAPECITABINE [Suspect]
     Route: 048
     Dates: start: 20101224, end: 20110107
  22. BEVACIZUMAB [Suspect]
     Route: 041
     Dates: start: 20101202, end: 20101202
  23. BEVACIZUMAB [Suspect]
     Route: 041
     Dates: start: 20101224, end: 20101224
  24. BEVACIZUMAB [Suspect]
     Route: 041
     Dates: start: 20110310, end: 20110310
  25. OXALIPLATIN [Suspect]
     Route: 041
     Dates: start: 20100617, end: 20100617
  26. CAPECITABINE [Suspect]
     Indication: COLON CANCER METASTATIC
     Route: 048
     Dates: start: 20100408, end: 20100422
  27. CAPECITABINE [Suspect]
     Route: 048
     Dates: start: 20110113, end: 20110127
  28. BEVACIZUMAB [Suspect]
     Route: 041
     Dates: start: 20101021, end: 20101021
  29. OXALIPLATIN [Suspect]
     Indication: COLON CANCER METASTATIC
     Route: 041
     Dates: start: 20100408, end: 20100408
  30. OXALIPLATIN [Suspect]
     Route: 041
     Dates: start: 20100708, end: 20100708
  31. BEVACIZUMAB [Suspect]
     Indication: COLON CANCER METASTATIC
     Route: 041
     Dates: start: 20100408, end: 20100408
  32. BEVACIZUMAB [Suspect]
     Route: 041
     Dates: start: 20100527, end: 20100527
  33. BEVACIZUMAB [Suspect]
     Route: 041
     Dates: start: 20100930, end: 20100930
  34. BEVACIZUMAB [Suspect]
     Route: 041
     Dates: start: 20101111, end: 20101111
  35. BEVACIZUMAB [Suspect]
     Route: 041
     Dates: start: 20110113, end: 20110113
  36. OXALIPLATIN [Suspect]
     Route: 041
     Dates: start: 20100527, end: 20100527
  37. OXALIPLATIN [Suspect]
     Route: 041
     Dates: start: 20100729, end: 20100729
  38. CAPECITABINE [Suspect]
     Route: 048
     Dates: start: 20100617, end: 20100701
  39. CAPECITABINE [Suspect]
     Route: 048
     Dates: start: 20101111, end: 20101125
  40. BEVACIZUMAB [Suspect]
     Route: 041
     Dates: start: 20100617, end: 20100617
  41. BEVACIZUMAB [Suspect]
     Route: 041
     Dates: start: 20110331, end: 20110331
  42. BEVACIZUMAB [Suspect]
     Route: 041
     Dates: start: 20110421, end: 20110421

REACTIONS (7)
  - DIARRHOEA [None]
  - PROTEINURIA [None]
  - PALMAR-PLANTAR ERYTHRODYSAESTHESIA SYNDROME [None]
  - NEUROPATHY PERIPHERAL [None]
  - PIGMENTATION DISORDER [None]
  - EPISTAXIS [None]
  - BLOOD BILIRUBIN INCREASED [None]
